FAERS Safety Report 14451620 (Version 13)
Quarter: 2019Q4

REPORT INFORMATION
  Report Type: Spontaneous
  Country: US (occurrence: US)
  Receive Date: 20180129
  Receipt Date: 20191226
  Transmission Date: 20200122
  Serious: Yes (Hospitalization, Other)
  Sender: FDA-Public Use
  Company Number: US-PFIZER INC-2018032941

PATIENT
  Age: 68 Year
  Sex: Female

DRUGS (7)
  1. CARVEDILOL. [Concomitant]
     Active Substance: CARVEDILOL
     Dosage: 3.125 MG, UNK
     Dates: start: 201803
  2. IBRANCE [Suspect]
     Active Substance: PALBOCICLIB
     Dosage: 125 MG, CYCLIC (ONCE A DAY, 125 MG A DAY FOR 21 DAYS-7 OFF)
     Dates: start: 20190701
  3. FASLODEX [Concomitant]
     Active Substance: FULVESTRANT
     Dosage: 250 ML, UNK (250 ML IN EACH INJECTION/INJECTIONS IN EACH BUTTOCK ONCE A MONTH)
  4. IBRANCE [Suspect]
     Active Substance: PALBOCICLIB
     Indication: BREAST CANCER METASTATIC
     Dosage: 125 MG, CYCLIC (TAKE ONE CAPSULE ONCE DAILY WITH FOOD FOR 21 DAYS, THEN 7 DAYS OFF)
     Route: 048
     Dates: start: 2015, end: 20190517
  5. IBRANCE [Suspect]
     Active Substance: PALBOCICLIB
     Dosage: 125 MG, CYCLIC (TAKE ONE CAPSULE ONCE DAILY WITH FOOD FOR 21 DAYS, THEN 7 DAYS OFF)
     Route: 048
     Dates: start: 20190525
  6. ACYCLOVIR. [Concomitant]
     Active Substance: ACYCLOVIR
     Dosage: UNK
  7. IBRANCE [Suspect]
     Active Substance: PALBOCICLIB
     Dosage: 125 MG, CYCLIC (ONE TIME A DAY FOR 21 DAYS THEN 7 DAYS OFF)
     Dates: start: 20160301

REACTIONS (17)
  - Skin cancer [Not Recovered/Not Resolved]
  - Second primary malignancy [Not Recovered/Not Resolved]
  - Fatigue [Recovering/Resolving]
  - Bronchitis viral [Recovered/Resolved]
  - Heart rate irregular [Unknown]
  - Taste disorder [Recovered/Resolved]
  - Urinary tract infection [Unknown]
  - Ageusia [Recovered/Resolved]
  - Peripheral vascular disorder [Unknown]
  - Cellulitis [Recovered/Resolved]
  - Cholecystitis infective [Unknown]
  - Hypoacusis [Not Recovered/Not Resolved]
  - Cholelithiasis [Unknown]
  - Peripheral swelling [Unknown]
  - Cystitis [Recovered/Resolved]
  - Extrasystoles [Unknown]
  - Heart rate increased [Not Recovered/Not Resolved]

NARRATIVE: CASE EVENT DATE: 201704
